FAERS Safety Report 11784931 (Version 1)
Quarter: 2015Q4

REPORT INFORMATION
  Report Type: Spontaneous
  Country: US (occurrence: None)
  Receive Date: 20151125
  Receipt Date: 20151125
  Transmission Date: 20160305
  Serious: Yes (Other)
  Sender: FDA-Public Use
  Company Number: None

PATIENT
  Age: 24 Year
  Sex: Female
  Weight: 108.86 kg

DRUGS (4)
  1. ORAL CONTRACEPTION [Concomitant]
  2. METFORMIN [Concomitant]
     Active Substance: METFORMIN HYDROCHLORIDE
  3. TOPIRAMATE TOPIRAMATE 25MG [Suspect]
     Active Substance: TOPIRAMATE
     Indication: MIGRAINE
     Dosage: 4 PILLS
     Route: 048
     Dates: start: 20131001, end: 20140301
  4. GEMFIBROZIL. [Concomitant]
     Active Substance: GEMFIBROZIL

REACTIONS (6)
  - Paraesthesia [None]
  - Sleep disorder [None]
  - Aggression [None]
  - Anger [None]
  - Headache [None]
  - Depression [None]

NARRATIVE: CASE EVENT DATE: 20140301
